FAERS Safety Report 8464367-X (Version None)
Quarter: 2012Q2

REPORT INFORMATION
  Report Type: 
  Country: None (occurrence: None)
  Receive Date: 20120626
  Receipt Date: 20120618
  Transmission Date: 20120825
  Serious: Yes (Hospitalization)
  Sender: FDA-Public Use
  Company Number: US-AMGEN-USASP2012034903

PATIENT
  Age: 53 Year
  Sex: Female
  Weight: 49.887 kg

DRUGS (17)
  1. IMITREX [Concomitant]
  2. PROLIA [Suspect]
     Indication: OSTEOPOROSIS POSTMENOPAUSAL
     Dosage: 60 MG, Q6MO
     Route: 030
     Dates: start: 20120426
  3. POTASSIUM ACETATE [Concomitant]
  4. HUMIRA [Concomitant]
  5. POTASSIUM ACETATE [Concomitant]
     Dosage: UNK UNK, PER CHEMO REGIM
  6. METHOTREXATE [Concomitant]
     Indication: RHEUMATOID ARTHRITIS
     Dates: start: 20120201, end: 20120201
  7. VALIUM [Concomitant]
     Indication: ANXIETY
     Dosage: 10 MG, PRN
  8. IBUPROFEN [Concomitant]
     Indication: PAIN
     Dosage: 800 MG, PRN
  9. PLAQUENIL [Concomitant]
  10. VITAMIN D [Concomitant]
     Dosage: 1 UNK, UNK
  11. CALCIUM [Concomitant]
     Dates: end: 20120101
  12. PRILOSEC [Concomitant]
     Dosage: 20 MG, UNK
  13. LASIX [Concomitant]
  14. GABAPENTIN [Concomitant]
  15. PREDNISONE [Concomitant]
  16. ENBREL [Suspect]
     Indication: RHEUMATOID ARTHRITIS
     Dosage: UNK
  17. CALCIUM [Concomitant]
     Dosage: UNK

REACTIONS (12)
  - FACIAL PAIN [None]
  - MUSCULOSKELETAL CHEST PAIN [None]
  - CARDIOVASCULAR DISORDER [None]
  - SKIN REACTION [None]
  - INFLUENZA LIKE ILLNESS [None]
  - PAIN [None]
  - STAPHYLOCOCCAL INFECTION [None]
  - MOBILITY DECREASED [None]
  - JOINT SWELLING [None]
  - ARTHRALGIA [None]
  - PAIN IN JAW [None]
  - OEDEMA PERIPHERAL [None]
